FAERS Safety Report 8344537 (Version 5)
Quarter: 2017Q1

REPORT INFORMATION
  Report Type: Report from Study
  Country: AU (occurrence: AU)
  Receive Date: 20120119
  Receipt Date: 20170125
  Transmission Date: 20170429
  Serious: Yes (Death)
  Sender: FDA-Public Use
  Company Number: AU-ROCHE-1031277

PATIENT

DRUGS (1)
  1. TENECTEPLASE [Suspect]
     Active Substance: TENECTEPLASE
     Indication: ISCHAEMIC STROKE
     Route: 042

REACTIONS (3)
  - Acute kidney injury [Fatal]
  - Myocardial infarction [Fatal]
  - Pneumonia [Fatal]
